FAERS Safety Report 10169763 (Version 2)
Quarter: 2014Q3

REPORT INFORMATION
  Report Type: Spontaneous
  Country: FR (occurrence: FR)
  Receive Date: 20140513
  Receipt Date: 20140922
  Transmission Date: 20150326
  Serious: Yes (Other)
  Sender: FDA-Public Use
  Company Number: FR-TEVA-480312ISR

PATIENT
  Age: 75 Year
  Sex: Male

DRUGS (9)
  1. KARDEGIC 75MG [Concomitant]
     Route: 048
     Dates: start: 2004
  2. ACETYLSALICYLIC ACID [Concomitant]
     Active Substance: ASPIRIN
     Route: 048
     Dates: start: 2004
  3. AMOXICILLINE ACIDE CLAVULANIQUE TEVA [Suspect]
     Active Substance: AMOXICILLIN\CLAVULANIC ACID
     Indication: BRONCHITIS
     Route: 048
     Dates: start: 20140102, end: 20140108
  4. OMEPRAZOLE 10MG [Concomitant]
     Active Substance: OMEPRAZOLE
     Route: 048
  5. SALMETEROL [Concomitant]
     Active Substance: SALMETEROL
     Indication: CHRONIC OBSTRUCTIVE PULMONARY DISEASE
  6. SERETIDE [Concomitant]
     Active Substance: FLUTICASONE FUROATE\SALMETEROL XINAFOATE
     Indication: CHRONIC OBSTRUCTIVE PULMONARY DISEASE
  7. XALATAN 0.005 POUR CENT [Concomitant]
     Indication: GLAUCOMA
     Dosage: 0.005 POUR CENT
     Route: 047
  8. HYDROCHLOROTHIAZIDE\VALSARTAN [Concomitant]
     Active Substance: HYDROCHLOROTHIAZIDE\VALSARTAN
     Indication: HYPERTENSION
     Route: 048
     Dates: start: 2002
  9. TAHOR 10MG [Concomitant]
     Indication: HYPERCHOLESTEROLAEMIA
     Route: 048
     Dates: start: 2002

REACTIONS (4)
  - Rash [Recovered/Resolved with Sequelae]
  - Eczema [Recovered/Resolved with Sequelae]
  - Pruritus [Recovered/Resolved with Sequelae]
  - Eosinophilia [Recovered/Resolved with Sequelae]

NARRATIVE: CASE EVENT DATE: 20140112
